FAERS Safety Report 19479527 (Version 3)
Quarter: 2021Q3

REPORT INFORMATION
  Report Type: Spontaneous
  Country: JP (occurrence: JP)
  Receive Date: 20210630
  Receipt Date: 20210714
  Transmission Date: 20211014
  Serious: Yes (Hospitalization, Other)
  Sender: FDA-Public Use
  Company Number: JP-009507513-2106JPN007651

PATIENT
  Age: 58 Year
  Sex: Male

DRUGS (19)
  1. PACLITAXEL. [Concomitant]
     Active Substance: PACLITAXEL
     Indication: NON-SMALL CELL LUNG CANCER RECURRENT
     Dosage: 200 MG/M2
     Route: 065
     Dates: start: 20210303
  2. DEXART [Concomitant]
     Active Substance: DEXAMETHASONE SODIUM PHOSPHATE
     Dosage: 8.25 MG
     Route: 065
     Dates: start: 20210303, end: 20210303
  3. ASTOMIN [DIMEMORFAN PHOSPHATE] [Concomitant]
     Active Substance: DIMEMORFAN PHOSPHATE
     Dosage: UNK
     Route: 065
  4. GASTER [OMEPRAZOLE] [Concomitant]
     Dosage: 20 MG
     Route: 065
     Dates: start: 20210303, end: 20210303
  5. DECADRON [Concomitant]
     Active Substance: DEXAMETHASONE
     Dosage: 4 MG
     Route: 048
     Dates: start: 20210304, end: 20210306
  6. EMEND [Suspect]
     Active Substance: APREPITANT
     Indication: PROPHYLAXIS OF NAUSEA AND VOMITING
     Dosage: UNK
     Route: 048
  7. RESTAMINE [Concomitant]
     Dosage: 50 MG
     Route: 048
     Dates: start: 20210303, end: 20210303
  8. SODIUM CHLORIDE. [Concomitant]
     Active Substance: SODIUM CHLORIDE
     Dosage: 1050 ML
     Route: 065
     Dates: start: 20210303, end: 20210303
  9. CARBOPLATIN. [Concomitant]
     Active Substance: CARBOPLATIN
     Indication: NON-SMALL CELL LUNG CANCER RECURRENT
     Dosage: AUC 5
     Route: 065
     Dates: start: 20210303
  10. NASEA OD [Concomitant]
     Active Substance: RAMOSETRON HYDROCHLORIDE
     Dosage: 0.1 MG
     Route: 048
     Dates: start: 20210303, end: 20210303
  11. JUZENTAIHOTO [ANGELICA ACUTILOBA ROOT;ASTRAGALUS SPP. ROOT;ATRACTYLODE [Concomitant]
     Active Substance: HERBALS
     Dosage: UNK   (DOSAGE FORM: GRAIN)
     Route: 048
  12. DAIPHEN [Concomitant]
     Active Substance: SULFAMETHOXAZOLE\TRIMETHOPRIM
     Dosage: UNK
     Route: 065
  13. OPDIVO [Suspect]
     Active Substance: NIVOLUMAB
     Indication: NON-SMALL CELL LUNG CANCER RECURRENT
     Dosage: 360 MG
     Route: 041
     Dates: start: 20210303, end: 20210303
  14. GLUCOSE [Concomitant]
     Active Substance: DEXTROSE
     Dosage: 250 ML
     Route: 041
     Dates: start: 20210303, end: 20210303
  15. TAKECAB [Concomitant]
     Active Substance: VONOPRAZAN FUMARATE
     Dosage: UNK
     Route: 065
  16. APREPITANT. [Concomitant]
     Active Substance: APREPITANT
     Dosage: 125 MG
     Route: 048
     Dates: start: 20210303, end: 20210303
  17. APREPITANT. [Concomitant]
     Active Substance: APREPITANT
     Dosage: 80 MG
     Route: 048
     Dates: start: 20210304, end: 20210305
  18. YERVOY [Suspect]
     Active Substance: IPILIMUMAB
     Indication: NON-SMALL CELL LUNG CANCER RECURRENT
     Dosage: 1 MG/KG
     Route: 041
     Dates: start: 20210303, end: 20210303
  19. BROTIZOLAM [Concomitant]
     Active Substance: BROTIZOLAM
     Dosage: UNK
     Route: 065

REACTIONS (3)
  - Pyrexia [Recovered/Resolved]
  - Drug eruption [Recovered/Resolved]
  - Acute kidney injury [Unknown]

NARRATIVE: CASE EVENT DATE: 20210311
